FAERS Safety Report 6902166-8 (Version None)
Quarter: 2010Q3

REPORT INFORMATION
  Report Type: 
  Country: None (occurrence: None)
  Receive Date: 20100803
  Receipt Date: 20100729
  Transmission Date: 20110219
  Serious: Yes (Other)
  Sender: FDA-Public Use
  Company Number: GB-MERCK-1007GBR00062

PATIENT
  Age: 83 Year
  Sex: Male

DRUGS (5)
  1. PROSCAR [Suspect]
     Route: 048
  2. ASPIRIN [Suspect]
     Route: 065
  3. LANSOPRAZOLE [Suspect]
     Route: 065
  4. TAMSULOSIN HYDROCHLORIDE [Suspect]
     Route: 065
  5. CARBIMAZOLE [Suspect]
     Indication: HYPERTHYROIDISM
     Route: 065

REACTIONS (3)
  - FATIGUE [None]
  - GYNAECOMASTIA [None]
  - HYPERTHYROIDISM [None]
